FAERS Safety Report 11056667 (Version 1)
Quarter: 2015Q2

REPORT INFORMATION
  Report Type: Spontaneous
  Country: US (occurrence: US)
  Receive Date: 20150422
  Receipt Date: 20150422
  Transmission Date: 20150821
  Serious: No
  Sender: FDA-Public Use
  Company Number: US-TARO-2015TAR00115

PATIENT
  Sex: Female

DRUGS (1)
  1. LAGICAM ANTIFUNGAL [Suspect]
     Active Substance: MICONAZOLE NITRATE
     Indication: VAGINAL INFECTION
     Dosage: UNK
     Dates: start: 20150203

REACTIONS (2)
  - Abdominal pain upper [Recovered/Resolved]
  - Pain in extremity [Recovered/Resolved]

NARRATIVE: CASE EVENT DATE: 20150203
